FAERS Safety Report 23848280 (Version 1)
Quarter: 2024Q2

REPORT INFORMATION
  Report Type: Spontaneous
  Country: JP (occurrence: JP)
  Receive Date: 20240513
  Receipt Date: 20240513
  Transmission Date: 20240716
  Serious: Yes (Other)
  Sender: FDA-Public Use
  Company Number: JP-PFIZER INC-202400105755

PATIENT
  Age: 90 Year
  Sex: Male

DRUGS (1)
  1. TAFAMIDIS [Suspect]
     Active Substance: TAFAMIDIS
     Indication: Cardiac amyloidosis
     Dosage: UNK
     Route: 048
     Dates: end: 202404

REACTIONS (2)
  - Cardiac failure [Unknown]
  - Dysphagia [Unknown]

NARRATIVE: CASE EVENT DATE: 20240401
